FAERS Safety Report 8995859 (Version 1)
Quarter: 2013Q1

REPORT INFORMATION
  Report Type: Report from Study
  Country: DE (occurrence: DE)
  Receive Date: 20130103
  Receipt Date: 20130103
  Transmission Date: 20140127
  Serious: Yes (Hospitalization)
  Sender: FDA-Public Use
  Company Number: DE-BAXTER-2012BAX025114

PATIENT
  Age: 74 Year
  Sex: Female
  Weight: 65 kg

DRUGS (4)
  1. ENDOXAN 1G [Suspect]
     Indication: BREAST CANCER
     Route: 042
     Dates: start: 20121002
  2. EPIRUBICIN HYDROCHLORIDE [Suspect]
     Indication: BREAST CANCER
     Route: 042
     Dates: start: 20121002
  3. METOPROLOL [Concomitant]
     Indication: PRODUCT USED FOR UNKNOWN INDICATION
     Route: 065
  4. CANDESARTAN [Concomitant]
     Indication: PRODUCT USED FOR UNKNOWN INDICATION
     Dosage: 16/12.5
     Route: 065
     Dates: start: 2002

REACTIONS (1)
  - Pulmonary embolism [Recovered/Resolved with Sequelae]
